FAERS Safety Report 9223259 (Version 1)
Quarter: 2013Q2

REPORT INFORMATION
  Report Type: Spontaneous
  Country: GB (occurrence: GB)
  Receive Date: 20130410
  Receipt Date: 20130410
  Transmission Date: 20140414
  Serious: Yes (Other)
  Sender: FDA-Public Use
  Company Number: GB-PFIZER INC-2013112492

PATIENT
  Age: 52 Year
  Sex: Female
  Weight: 57.15 kg

DRUGS (9)
  1. GABAPENTIN [Suspect]
     Dosage: UNK
     Dates: start: 20121217
  2. AMITRIPTYLINE HYDROCHLORIDE [Concomitant]
     Dosage: UNK
     Dates: start: 20121217
  3. CO-CODAMOL [Concomitant]
     Dosage: UNK
     Dates: start: 20121217
  4. IBUPROFEN [Concomitant]
     Dosage: UNK
     Dates: start: 20121217, end: 20130211
  5. IBUPROFEN [Concomitant]
     Dates: start: 20130314
  6. FLUCLOXACILLIN [Concomitant]
     Dosage: UNK
     Dates: start: 20130108, end: 20130115
  7. CHLORPHENAMINE [Concomitant]
     Dosage: UNK
     Dates: start: 20130307, end: 20130316
  8. LANSOPRAZOLE [Concomitant]
     Dosage: UNK
     Dates: start: 20130314
  9. METOCLOPRAMIDE [Concomitant]
     Dosage: UNK
     Dates: start: 20130314

REACTIONS (3)
  - Rash generalised [Unknown]
  - Blister [Unknown]
  - Superinfection [Unknown]
